FAERS Safety Report 16526027 (Version 3)
Quarter: 2025Q2

REPORT INFORMATION
  Report Type: Spontaneous
  Country: JP (occurrence: JP)
  Receive Date: 20190703
  Receipt Date: 20250403
  Transmission Date: 20250717
  Serious: Yes (Death, Other)
  Sender: AUROBINDO
  Company Number: JP-AUROBINDO-AUR-APL-2019-038430

PATIENT
  Age: 79 Year
  Sex: Female
  Weight: 59 kg

DRUGS (5)
  1. FOLOTYN [Suspect]
     Active Substance: PRALATREXATE
     Indication: Peripheral T-cell lymphoma unspecified
     Route: 042
     Dates: start: 201803
  2. FOLOTYN [Suspect]
     Active Substance: PRALATREXATE
     Route: 042
     Dates: start: 201805
  3. FORODESINE HYDROCHLORIDE [Suspect]
     Active Substance: FORODESINE HYDROCHLORIDE
     Indication: Peripheral T-cell lymphoma unspecified
     Dosage: 600 MILLIGRAM, ONCE A DAY
     Route: 065
     Dates: start: 201804
  4. FOLIC ACID [Concomitant]
     Active Substance: FOLIC ACID
     Indication: Prophylaxis
     Dosage: 1 MILLIGRAM, ONCE A DAY
     Route: 048
  5. VITAMIN B12 [Concomitant]
     Active Substance: CYANOCOBALAMIN
     Indication: Prophylaxis
     Route: 065

REACTIONS (6)
  - Pneumonia [Fatal]
  - Stomatitis [Recovered/Resolved]
  - Lymphopenia [Unknown]
  - Malignant neoplasm progression [Unknown]
  - White blood cell count decreased [Unknown]
  - Neutrophil count decreased [Unknown]

NARRATIVE: CASE EVENT DATE: 20180501
